FAERS Safety Report 18325148 (Version 1)
Quarter: 2020Q3

REPORT INFORMATION
  Report Type: Other
  Country: US (occurrence: US)
  Receive Date: 20200928
  Receipt Date: 20200928
  Transmission Date: 20201103
  Serious: Yes (Hospitalization)
  Sender: FDA-Public Use
  Company Number: US-ROCHE-2682658

PATIENT
  Sex: Female

DRUGS (2)
  1. OCREVUS [Suspect]
     Active Substance: OCRELIZUMAB
     Indication: RELAPSING MULTIPLE SCLEROSIS
     Dosage: DATE OF TREATMENT? 31/MAR/2020, 25/SEP/2019, 28/FEB/2018, 19/MAR/2019, 17/SEP/2018, 19/MAR/2018
     Route: 042
     Dates: start: 20180228
  2. OCREVUS [Suspect]
     Active Substance: OCRELIZUMAB
     Dosage: DATE OF TREATMENT? 31/MAR/2020, 25/SEP/2019, 28/FEB/2018, 19/MAR/2019, 17/SEP/2018, 19/MAR/2018
     Route: 042

REACTIONS (1)
  - Pneumonia [Unknown]
